FAERS Safety Report 19940829 (Version 1)
Quarter: 2021Q4

REPORT INFORMATION
  Report Type: Spontaneous
  Country: GB (occurrence: GB)
  Receive Date: 20211012
  Receipt Date: 20211012
  Transmission Date: 20220303
  Serious: Yes (Death, Other)
  Sender: FDA-Public Use
  Company Number: GB-CELLTRION INC.-2021GB013848

PATIENT

DRUGS (2)
  1. RITUXIMAB [Suspect]
     Active Substance: RITUXIMAB
     Indication: Primary mediastinal large B-cell lymphoma
     Dosage: DOSE ADJUSTED, SIX COURSES
  2. CYCLOPHOSPHAMIDE\DOXORUBICIN\ETOPOSIDE\PREDNISONE\VINCRISTINE [Suspect]
     Active Substance: CYCLOPHOSPHAMIDE\DOXORUBICIN\ETOPOSIDE\PREDNISONE\VINCRISTINE
     Indication: Primary mediastinal large B-cell lymphoma
     Dosage: DOSE ADJUSTED, SIX COURSES

REACTIONS (7)
  - Death [Fatal]
  - Second primary malignancy [Fatal]
  - Adverse event [Unknown]
  - Disease progression [Unknown]
  - Disease recurrence [Unknown]
  - Cardiac disorder [Unknown]
  - Drug ineffective [Unknown]
